FAERS Safety Report 5326510-0 (Version None)
Quarter: 2007Q2

REPORT INFORMATION
  Report Type: 
  Country: None (occurrence: None)
  Receive Date: 20070516
  Receipt Date: 20070510
  Transmission Date: 20071010
  Serious: Yes (Death)
  Sender: FDA-Public Use
  Company Number: US-PURDUE-USA_2007_0027241

PATIENT
  Age: 4 Year
  Sex: Male

DRUGS (4)
  1. OXYCONTIN [Suspect]
     Indication: VICTIM OF HOMICIDE
     Dates: start: 20070401
  2. OXYMORPHONE [Suspect]
     Indication: VICTIM OF HOMICIDE
     Dates: start: 20070401
  3. DIPHENHYDRAMINE HCL [Suspect]
     Indication: VICTIM OF HOMICIDE
     Dates: start: 20070401
  4. CAFFEINE [Suspect]
     Indication: VICTIM OF HOMICIDE
     Dates: start: 20070401

REACTIONS (2)
  - OVERDOSE [None]
  - VICTIM OF HOMICIDE [None]
